FAERS Safety Report 15917462 (Version 2)
Quarter: 2019Q1

REPORT INFORMATION
  Report Type: Report from Study
  Country: IT (occurrence: IT)
  Receive Date: 20190205
  Receipt Date: 20190215
  Transmission Date: 20190417
  Serious: Yes (Hospitalization)
  Sender: FDA-Public Use
  Company Number: IT-ACCORD-105324

PATIENT
  Age: 87 Year
  Sex: Female
  Weight: 80 kg

DRUGS (11)
  1. TARDYFER [Concomitant]
     Active Substance: FERROUS SULFATE
     Route: 048
  2. TORADIUR [Concomitant]
     Active Substance: TORSEMIDE
     Route: 048
  3. IRBESARTAN. [Concomitant]
     Active Substance: IRBESARTAN
     Route: 048
  4. DIAMICRON [Concomitant]
     Active Substance: GLICLAZIDE
  5. AMLODIPINE [Concomitant]
     Active Substance: AMLODIPINE BESYLATE
     Route: 048
  6. COUMADIN [Concomitant]
     Active Substance: WARFARIN SODIUM
     Route: 048
  7. METFORMIN [Concomitant]
     Active Substance: METFORMIN HYDROCHLORIDE
     Route: 048
  8. ALLOPURINOL. [Suspect]
     Active Substance: ALLOPURINOL
     Indication: PRODUCT USED FOR UNKNOWN INDICATION
     Route: 048
     Dates: start: 20171116, end: 20171117
  9. FOLINA [Concomitant]
     Active Substance: FOLIC ACID
     Route: 048
  10. PAROXETINE. [Concomitant]
     Active Substance: PAROXETINE
     Route: 048
  11. PANTOPRAZOLE [Concomitant]
     Active Substance: PANTOPRAZOLE
     Route: 048

REACTIONS (1)
  - Hypersensitivity vasculitis [Recovered/Resolved]

NARRATIVE: CASE EVENT DATE: 20171117
